FAERS Safety Report 13229350 (Version 1)
Quarter: 2017Q1

REPORT INFORMATION
  Report Type: Spontaneous
  Country: US (occurrence: US)
  Receive Date: 20170214
  Receipt Date: 20170214
  Transmission Date: 20170428
  Serious: No
  Sender: FDA-Public Use
  Company Number: US-AUROBINDO-AUR-APU-2016-11767

PATIENT
  Age: 53 Year
  Sex: Male
  Weight: 74.38 kg

DRUGS (1)
  1. SIMVASTATIN TABLETS USP 10 MG [Suspect]
     Active Substance: SIMVASTATIN
     Indication: HYPERCHOLESTEROLAEMIA
     Dosage: 10 MG, ONCE A DAY
     Route: 065
     Dates: start: 201511, end: 20160915

REACTIONS (3)
  - Aggression [Not Recovered/Not Resolved]
  - Hyperhidrosis [Not Recovered/Not Resolved]
  - Weight decreased [Not Recovered/Not Resolved]

NARRATIVE: CASE EVENT DATE: 201512
